FAERS Safety Report 7156355-0 (Version None)
Quarter: 2010Q4

REPORT INFORMATION
  Report Type: 
  Country: None (occurrence: None)
  Receive Date: 20101214
  Receipt Date: 20101201
  Transmission Date: 20110411
  Serious: Yes (Other)
  Sender: FDA-Public Use
  Company Number: US-PFIZER INC-2008098979

PATIENT
  Sex: Female
  Weight: 63 kg

DRUGS (21)
  1. CHANTIX [Suspect]
     Indication: SMOKING CESSATION THERAPY
     Dosage: 0.5 MG, 1X/DAY
     Route: 048
     Dates: start: 20081003, end: 20090201
  2. CHANTIX [Suspect]
     Dosage: 1 MG, 2X/DAY
     Route: 048
     Dates: start: 20100524
  3. CHANTIX [Suspect]
     Dosage: 0.5 MG, 1X/DAY
     Route: 048
     Dates: start: 20100525
  4. ELAVIL [Concomitant]
     Indication: DEPRESSION
     Dosage: 150 MG, 2X/DAY
     Route: 048
  5. ELAVIL [Concomitant]
     Indication: BIPOLAR I DISORDER
  6. LARIAM [Concomitant]
  7. RESTORIL [Concomitant]
     Indication: ANXIETY
  8. TYLENOL (CAPLET) [Concomitant]
  9. ACETYLSALICYLIC ACID [Concomitant]
  10. ALEVE (CAPLET) [Concomitant]
  11. LIBRIUM [Concomitant]
     Indication: ANXIETY
     Dosage: 25 MG, 3X/DAY
     Route: 048
  12. LIBRIUM [Concomitant]
     Indication: BIPOLAR I DISORDER
  13. LEXAPRO [Concomitant]
     Dosage: 20 MG, UNK
  14. ANXIOLYTICS [Concomitant]
     Dosage: UNK
  15. TYLENOL W/ CODEINE NO. 4 [Concomitant]
     Indication: BACK PAIN
  16. ADVAIR DISKUS 100/50 [Concomitant]
  17. COFFEE [Concomitant]
  18. SULINDAC [Concomitant]
     Indication: TENSION
     Dosage: 200 MG, UNK
  19. OMEPRAZOLE [Concomitant]
     Indication: ABDOMINAL DISCOMFORT
     Dosage: 20 MG, 1X/DAY
     Route: 048
  20. OMEPRAZOLE [Concomitant]
     Indication: GASTRIC DISORDER
  21. LYRICA [Concomitant]
     Indication: PAIN
     Dosage: 50 MG, UNK

REACTIONS (7)
  - ABNORMAL BEHAVIOUR [None]
  - ANXIETY [None]
  - DEPRESSION [None]
  - HOMICIDAL IDEATION [None]
  - MENTAL IMPAIRMENT [None]
  - NERVOUSNESS [None]
  - SELF-INJURIOUS IDEATION [None]
